FAERS Safety Report 7807060-6 (Version None)
Quarter: 2011Q4

REPORT INFORMATION
  Report Type: 
  Country: None (occurrence: None)
  Receive Date: 20111011
  Receipt Date: 20111005
  Transmission Date: 20120403
  Serious: Yes (Other)
  Sender: FDA-Public Use
  Company Number: US-TEVA-303930USA

PATIENT
  Age: 50 Year
  Sex: Female

DRUGS (1)
  1. COPAXONE [Suspect]
     Indication: MULTIPLE SCLEROSIS
     Dosage: 20 MILLIGRAM;
     Route: 058
     Dates: start: 20090201, end: 20110701

REACTIONS (6)
  - FLUSHING [None]
  - IMMEDIATE POST-INJECTION REACTION [None]
  - APHASIA [None]
  - PAIN [None]
  - DYSGEUSIA [None]
  - CONVULSION [None]
